FAERS Safety Report 8758789 (Version 1)
Quarter: 2012Q4

REPORT INFORMATION
  Report Type: 
  Country: FR (occurrence: FR)
  Receive Date: 20120829
  Receipt Date: 20120829
  Transmission Date: 20130627
  Serious: Yes (Other)
  Sender: FDA-Public Use
  Company Number: PHHY2012FR073977

PATIENT
  Sex: Female

DRUGS (1)
  1. TRILEPTAL [Suspect]
     Route: 064

REACTIONS (5)
  - Micrognathia [Unknown]
  - Bone decalcification [Unknown]
  - Bone deformity [Unknown]
  - Congenital nose malformation [Unknown]
  - Exposure during pregnancy [None]
